FAERS Safety Report 6167273-9 (Version None)
Quarter: 2009Q2

REPORT INFORMATION
  Report Type: 
  Country: None (occurrence: None)
  Receive Date: 20090424
  Receipt Date: 20090417
  Transmission Date: 20091009
  Serious: Yes (Life-Threatening)
  Sender: FDA-Public Use
  Company Number: GB-TEVA-192216ISR

PATIENT
  Age: 58 Year
  Sex: Female

DRUGS (1)
  1. TRIMETHOPRIM [Suspect]
     Indication: URINARY TRACT INFECTION
     Route: 048
     Dates: start: 20080401, end: 20080404

REACTIONS (10)
  - ANURIA [None]
  - CARDIAC ARREST [None]
  - HEPATIC FUNCTION ABNORMAL [None]
  - JAUNDICE [None]
  - LIVER DISORDER [None]
  - MENINGITIS ASEPTIC [None]
  - METABOLIC ACIDOSIS [None]
  - RASH GENERALISED [None]
  - RENAL FAILURE ACUTE [None]
  - URTICARIA [None]
